FAERS Safety Report 10582148 (Version 1)
Quarter: 2014Q4

REPORT INFORMATION
  Report Type: Spontaneous
  Country: US (occurrence: US)
  Receive Date: 20141113
  Receipt Date: 20141113
  Transmission Date: 20150529
  Serious: Yes (Other)
  Sender: FDA-Public Use
  Company Number: PHHY2014US146169

PATIENT
  Age: 64 Year
  Sex: Female

DRUGS (1)
  1. HEPARIN [Suspect]
     Active Substance: HEPARIN SODIUM
     Indication: PRODUCT USED FOR UNKNOWN INDICATION
     Route: 065

REACTIONS (6)
  - Wound [Unknown]
  - Abdominal tenderness [Unknown]
  - Pain [Unknown]
  - Eschar [Unknown]
  - Induration [Unknown]
  - Necrosis [Unknown]
